FAERS Safety Report 11516152 (Version 1)
Quarter: 2015Q3

REPORT INFORMATION
  Report Type: Report from Study
  Country: US (occurrence: US)
  Receive Date: 20150917
  Receipt Date: 20150917
  Transmission Date: 20151125
  Serious: No
  Sender: FDA-Public Use
  Company Number: PHEH2015US017841

PATIENT
  Sex: Female

DRUGS (1)
  1. GILENYA [Suspect]
     Active Substance: FINGOLIMOD HYDROCHLORIDE
     Indication: PRODUCT USED FOR UNKNOWN INDICATION
     Route: 065

REACTIONS (9)
  - Frustration [Unknown]
  - Visual impairment [Unknown]
  - Feeling hot [Unknown]
  - Ocular hyperaemia [Unknown]
  - Crying [Unknown]
  - Pain [Unknown]
  - Vitreous floaters [Unknown]
  - Fall [Unknown]
  - Screaming [Unknown]

NARRATIVE: CASE EVENT DATE: 20150831
